FAERS Safety Report 5523221-3 (Version None)
Quarter: 2007Q4

REPORT INFORMATION
  Report Type: 
  Country: None (occurrence: None)
  Receive Date: 20071121
  Receipt Date: 20071116
  Transmission Date: 20080405
  Serious: Yes (Death, Hospitalization)
  Sender: FDA-Public Use
  Company Number: US-BRISTOL-MYERS SQUIBB COMPANY-13986112

PATIENT
  Age: 73 Year
  Sex: Female
  Weight: 63 kg

DRUGS (4)
  1. CYTOXAN [Suspect]
     Indication: BREAST CANCER
     Dates: start: 20070109, end: 20070109
  2. ADRIAMYCIN PFS [Suspect]
     Indication: BREAST CANCER
     Dates: start: 20070109, end: 20070109
  3. TAXOTERE [Suspect]
     Indication: BREAST CANCER
     Dates: start: 20070109, end: 20070109
  4. NEULASTA [Concomitant]
     Dates: start: 20070110

REACTIONS (4)
  - ABDOMINAL PAIN [None]
  - HYPERTENSION [None]
  - HYPOTENSION [None]
  - SEPSIS [None]
